FAERS Safety Report 8223641-2 (Version None)
Quarter: 2012Q1

REPORT INFORMATION
  Report Type: 
  Country: None (occurrence: None)
  Receive Date: 20120321
  Receipt Date: 20120319
  Transmission Date: 20120608
  Serious: No
  Sender: FDA-Public Use
  Company Number: US-PFIZER INC-2012071596

PATIENT
  Sex: Male
  Weight: 113.4 kg

DRUGS (1)
  1. LYRICA [Suspect]
     Indication: NEUROPATHY PERIPHERAL
     Dosage: 150 MG, 3X/DAY
     Route: 048
     Dates: start: 20120301

REACTIONS (5)
  - NEURALGIA [None]
  - PARAESTHESIA [None]
  - ARTHRALGIA [None]
  - DRUG EFFECT DECREASED [None]
  - PAIN [None]
